FAERS Safety Report 4312196-0 (Version None)
Quarter: 2004Q1

REPORT INFORMATION
  Report Type: 
  Country: None (occurrence: None)
  Receive Date: 20040303
  Receipt Date: 20040219
  Transmission Date: 20041129
  Serious: Yes (Hospitalization)
  Sender: FDA-Public Use
  Company Number: 04P-163-0251306-00

PATIENT
  Sex: Male

DRUGS (1)
  1. ZEMPLAR INJECTION (PARICALCITOL INJECTION) (PARICALCITOL) [Suspect]
     Indication: RENAL FAILURE CHRONIC
     Dosage: 24MCG, INJECTION

REACTIONS (2)
  - BLOOD CALCIUM INCREASED [None]
  - BLOOD PARATHYROID HORMONE INCREASED [None]
